FAERS Safety Report 4284085-1 (Version None)
Quarter: 2004Q1

REPORT INFORMATION
  Report Type: 
  Country: None (occurrence: None)
  Receive Date: 20040130
  Receipt Date: 20040121
  Transmission Date: 20041129
  Serious: Yes (Death, Hospitalization)
  Sender: FDA-Public Use
  Company Number: NSADSS2002007416

PATIENT
  Sex: Female

DRUGS (4)
  1. REOPRO [Suspect]
     Indication: ILL-DEFINED DISORDER
     Dosage: INTRAVENOUS DRIP
     Route: 041
     Dates: start: 20020227, end: 20020228
  2. HEPARIN SODIUM [Suspect]
     Indication: ILL-DEFINED DISORDER
     Dosage: INTRAVENOUS DRIP
     Route: 041
     Dates: start: 20020227, end: 20020228
  3. ASPIRIN [Concomitant]
  4. PLAVIX [Concomitant]

REACTIONS (1)
  - PLATELET COUNT DECREASED [None]
